FAERS Safety Report 6904574-8 (Version None)
Quarter: 2010Q3

REPORT INFORMATION
  Report Type: 
  Country: None (occurrence: None)
  Receive Date: 20100804
  Receipt Date: 20090616
  Transmission Date: 20110219
  Serious: No
  Sender: FDA-Public Use
  Company Number: US-PFIZER INC-2009190405

PATIENT
  Age: 43 Year
  Sex: Male

DRUGS (2)
  1. LYRICA [Suspect]
     Dosage: 50 MG, 2X/DAY
     Dates: start: 20090101, end: 20090101
  2. NEURONTIN [Suspect]
     Dosage: UNK
     Dates: start: 20090101, end: 20090101

REACTIONS (2)
  - GENITAL RASH [None]
  - TESTICULAR SWELLING [None]
